FAERS Safety Report 21291012 (Version 1)
Quarter: 2022Q3

REPORT INFORMATION
  Report Type: Spontaneous
  Country: DE (occurrence: DE)
  Receive Date: 20220903
  Receipt Date: 20220903
  Transmission Date: 20221027
  Serious: Yes (Other)
  Sender: FDA-Public Use
  Company Number: DE-GLENMARK PHARMACEUTICALS-2022GMK072010

PATIENT
  Age: 60 Year
  Sex: Female
  Weight: 76 kg

DRUGS (3)
  1. OLANZAPINE [Suspect]
     Active Substance: OLANZAPINE
     Indication: Psychotic disorder
     Dosage: 10 MILLIGRAM, ONCE A DAY10 MILLIGRAM, OD (10 MILLIGRAM, 1 TABLET IN THE EVENING)
     Route: 048
     Dates: start: 1994, end: 202111
  2. LEVOTHYROXINE SODIUM [Concomitant]
     Active Substance: LEVOTHYROXINE SODIUM
     Indication: Hypothyroidism
     Dosage: 75 MICROGRAM, ONCE A DAY
     Route: 048
     Dates: start: 200009
  3. IODINE [Concomitant]
     Active Substance: IODINE
     Indication: Hypothyroidism
     Dosage: 50 MILLIGRAM, ONCE A DAY
     Route: 048
     Dates: start: 202009

REACTIONS (4)
  - HER2 positive breast cancer [Unknown]
  - Weight increased [Recovered/Resolved]
  - Constipation [Recovered/Resolved]
  - Psychotic disorder [Unknown]

NARRATIVE: CASE EVENT DATE: 20210607
